FAERS Safety Report 8365248-2 (Version None)
Quarter: 2012Q2

REPORT INFORMATION
  Report Type: 
  Country: None (occurrence: None)
  Receive Date: 20120516
  Receipt Date: 20120511
  Transmission Date: 20120825
  Serious: Yes (Hospitalization)
  Sender: FDA-Public Use
  Company Number: EC-B.I. PHARMACEUTICALS,INC./RIDGEFIELD-2012-RA-00116RA

PATIENT
  Age: 73 Year
  Sex: Female

DRUGS (4)
  1. CEPHALEXIN [Concomitant]
     Dosage: 2 G
     Route: 048
  2. MELOXICAM [Concomitant]
  3. TRAMADOL HCL [Concomitant]
  4. PRADAXA [Suspect]
     Indication: THROMBOSIS PROPHYLAXIS
     Dosage: 220 MG
     Route: 048
     Dates: start: 20120430, end: 20120508

REACTIONS (1)
  - EMBOLISM VENOUS [None]
